FAERS Safety Report 7283855-5 (Version None)
Quarter: 2011Q1

REPORT INFORMATION
  Report Type: 
  Country: None (occurrence: None)
  Receive Date: 20110209
  Receipt Date: 20110128
  Transmission Date: 20110831
  Serious: Yes (Other)
  Sender: FDA-Public Use
  Company Number: US-WATSON-2010-12915

PATIENT
  Sex: Female
  Weight: 67.12 kg

DRUGS (15)
  1. FENTANYL-75 [Suspect]
     Indication: BACK PAIN
     Dosage: 1 PATCH Q3D
     Route: 062
     Dates: start: 20091201
  2. KLONOPIN [Suspect]
     Indication: ANXIETY
     Dosage: 2 MG, DAILY
     Route: 048
  3. FENTANYL-75 [Suspect]
     Indication: SPINAL COLUMN STENOSIS
     Dosage: 1 PATCH Q3D
     Route: 062
     Dates: start: 20091201, end: 20100904
  4. LEVOTHYROXINE SODIUM [Concomitant]
     Indication: THYROID DISORDER
     Dosage: 0.075 MG, DAILY
     Route: 048
  5. FENTANYL-50 [Suspect]
     Indication: SPINAL COLUMN STENOSIS
  6. CYMBALTA [Suspect]
     Indication: DEPRESSION
     Dosage: 90 MG, DAILY
     Route: 048
     Dates: start: 20101101
  7. CYMBALTA [Suspect]
     Dosage: 90 MG, DAILY
     Route: 048
     Dates: end: 20101101
  8. PERCOCET [Concomitant]
     Indication: BREAKTHROUGH PAIN
     Dosage: 1 TAB 4 TIMES DAILY PRN
     Route: 048
     Dates: start: 20100801
  9. PREVACID [Concomitant]
     Indication: GASTROOESOPHAGEAL REFLUX DISEASE
     Dosage: UNK
     Route: 048
  10. FENTANYL-75 [Suspect]
     Indication: INTERVERTEBRAL DISC DEGENERATION
     Dosage: 1 PATCH Q3D
     Route: 062
     Dates: start: 20100905
  11. FENTANYL-50 [Suspect]
     Indication: PAIN
     Dosage: 1 PATCH Q 3 DAYS
     Route: 062
     Dates: start: 20080101, end: 20091201
  12. FENTANYL-50 [Suspect]
     Indication: INTERVERTEBRAL DISC DEGENERATION
  13. TRAZODONE HCL [Concomitant]
     Indication: INSOMNIA
     Dosage: 50 MG, PRN FOR SLEEP
     Route: 048
  14. CYMBALTA [Suspect]
     Dosage: 60 MG, DAILY FOR ONE WEEK
     Route: 048
     Dates: start: 20101101, end: 20101101
  15. LYRICA [Suspect]
     Indication: NEURALGIA
     Dosage: 300 MG, DAILY
     Route: 048

REACTIONS (22)
  - DIZZINESS [None]
  - MUSCLE SPASMS [None]
  - APPLICATION SITE IRRITATION [None]
  - APPLICATION SITE ERYTHEMA [None]
  - CONFUSIONAL STATE [None]
  - APHASIA [None]
  - FATIGUE [None]
  - APPLICATION SITE EROSION [None]
  - URINARY INCONTINENCE [None]
  - VISION BLURRED [None]
  - APPLICATION SITE URTICARIA [None]
  - FEELING ABNORMAL [None]
  - IRRITABILITY [None]
  - SOMNOLENCE [None]
  - VERTIGO [None]
  - GAIT DISTURBANCE [None]
  - MUSCLE RIGIDITY [None]
  - BODY TEMPERATURE INCREASED [None]
  - DEPRESSED LEVEL OF CONSCIOUSNESS [None]
  - THOUGHT BLOCKING [None]
  - MEMORY IMPAIRMENT [None]
  - MALAISE [None]
